FAERS Safety Report 11373537 (Version 1)
Quarter: 2015Q3

REPORT INFORMATION
  Report Type: Spontaneous
  Country: SE (occurrence: None)
  Receive Date: 20150811
  Receipt Date: 20150811
  Transmission Date: 20151125
  Serious: No
  Sender: FDA-Public Use
  Company Number: 1508SWE001675

PATIENT
  Age: 65 Year
  Sex: Male

DRUGS (1)
  1. CEDAX [Suspect]
     Active Substance: CEFTIBUTEN DIHYDRATE
     Route: 048

REACTIONS (2)
  - Wrong technique in product usage process [None]
  - Drug dispensing error [None]

NARRATIVE: CASE EVENT DATE: 201507
